FAERS Safety Report 9269527 (Version 2)
Quarter: 2014Q1

REPORT INFORMATION
  Report Type: Spontaneous
  Country: IT (occurrence: IT)
  Receive Date: 20130503
  Receipt Date: 20140314
  Transmission Date: 20141002
  Serious: Yes (Other)
  Sender: FDA-Public Use
  Company Number: IT-PFIZER INC-2013135110

PATIENT
  Age: 75 Year
  Sex: Female
  Weight: 65 kg

DRUGS (1)
  1. ATORVASTATIN CALCIUM [Suspect]
     Indication: HYPERCHOLESTEROLAEMIA
     Dosage: 20 MG, DAILY
     Route: 048
     Dates: start: 20121101, end: 20121104

REACTIONS (2)
  - Abdominal pain lower [Recovered/Resolved]
  - Abdominal pain upper [Recovered/Resolved]
